FAERS Safety Report 6878139-0 (Version None)
Quarter: 2010Q2

REPORT INFORMATION
  Report Type: 
  Country: None (occurrence: None)
  Receive Date: 20100622
  Receipt Date: 20100416
  Transmission Date: 20101027
  Serious: No
  Sender: FDA-Public Use
  Company Number: 2010US000026

PATIENT
  Age: 71 Year
  Sex: Male
  Weight: 68.0396 kg

DRUGS (5)
  1. ENTEREG [Suspect]
     Indication: POSTOPERATIVE ILEUS
     Dosage: 12 MG; PO
     Route: 048
     Dates: start: 20100412
  2. HYDROMORPHONE [Concomitant]
  3. ENOXAPARIN SODIUM [Concomitant]
  4. METOCLOPRAMIDE [Concomitant]
  5. METOPROLOL TARTRATE [Concomitant]

REACTIONS (1)
  - CREATININE RENAL CLEARANCE INCREASED [None]
